FAERS Safety Report 14283502 (Version 2)
Quarter: 2025Q1

REPORT INFORMATION
  Report Type: Spontaneous
  Country: IT (occurrence: IT)
  Receive Date: 20171214
  Receipt Date: 20250120
  Transmission Date: 20250409
  Serious: Yes (Death)
  Sender: MERCK
  Company Number: IT-PFIZER INC-2017512404

PATIENT
  Age: 55 Year
  Sex: Female

DRUGS (12)
  1. CASPOFUNGIN ACETATE [Suspect]
     Active Substance: CASPOFUNGIN ACETATE
     Indication: Mucormycosis
     Dates: start: 2009
  2. DEFERASIROX [Suspect]
     Active Substance: DEFERASIROX
     Indication: Mucormycosis
  3. AMPHOTERICIN B [Suspect]
     Active Substance: AMPHOTERICIN B
     Indication: Mucormycosis
     Dosage: 3 MG/KG, DAILY(LIPOSOMAL)
     Dates: start: 2009
  4. AMPHOTERICIN B [Suspect]
     Active Substance: AMPHOTERICIN B
     Dosage: 5 MG/KG, 1X/DAY (INCREASED UP TO 5 MG/KG/DAY)
     Dates: start: 2009
  5. CYCLOSPORINE [Concomitant]
     Active Substance: CYCLOSPORINE
     Indication: Graft versus host disease
  6. PIPERACILLIN SODIUM\TAZOBACTAM SODIUM [Concomitant]
     Active Substance: PIPERACILLIN SODIUM\TAZOBACTAM SODIUM
     Indication: Antibiotic therapy
  7. FLUCONAZOLE [Concomitant]
     Active Substance: FLUCONAZOLE
     Indication: Antifungal prophylaxis
  8. LEVOFLOXACIN [Concomitant]
     Active Substance: LEVOFLOXACIN
     Indication: Antibiotic prophylaxis
  9. CYCLOPHOSPHAMIDE [Concomitant]
     Active Substance: CYCLOPHOSPHAMIDE
     Dosage: 60 MG/KG, DAILY
  10. BUSULFAN [Concomitant]
     Active Substance: BUSULFAN
     Dosage: 3.2 MG/KG, DAILY
  11. THYMOCYTE IMMUNE GLOBULIN NOS [Concomitant]
     Active Substance: THYMOCYTE IMMUNE GLOBULIN NOS
     Indication: Graft versus host disease
  12. METHOTREXATE [Concomitant]
     Active Substance: METHOTREXATE
     Indication: Graft versus host disease

REACTIONS (1)
  - Treatment failure [Fatal]
